FAERS Safety Report 8724690 (Version 2)
Quarter: 2012Q4

REPORT INFORMATION
  Report Type: 
  Country: US (occurrence: US)
  Receive Date: 20120815
  Receipt Date: 20120919
  Transmission Date: 20130627
  Serious: Yes (Hospitalization, Other)
  Sender: FDA-Public Use
  Company Number: US-PFIZER INC-2012195942

PATIENT
  Age: 46 Year
  Sex: Male
  Weight: 99.3 kg

DRUGS (3)
  1. NEURONTIN [Suspect]
     Indication: NEUROPATHY PERIPHERAL
     Dosage: 2400 mg, 2x/day
     Dates: start: 2000
  2. AMITRIPTYLINE [Concomitant]
     Dosage: 30 mg, daily
  3. METOCLOPRAMIDE [Concomitant]
     Dosage: 10 mg, 2x/day

REACTIONS (1)
  - Diverticulitis [Unknown]
